FAERS Safety Report 18955967 (Version 2)
Quarter: 2021Q1

REPORT INFORMATION
  Report Type: Spontaneous
  Country: IT (occurrence: IT)
  Receive Date: 20210302
  Receipt Date: 20210319
  Transmission Date: 20210420
  Serious: Yes (Death, Other)
  Sender: FDA-Public Use
  Company Number: IT-AMGEN-ITASP2021030929

PATIENT

DRUGS (2)
  1. SEVELAMER [Concomitant]
     Active Substance: SEVELAMER
  2. CINACALCET HCL [Suspect]
     Active Substance: CINACALCET HYDROCHLORIDE
     Indication: PRODUCT USED FOR UNKNOWN INDICATION
     Dosage: UNK
     Route: 065

REACTIONS (6)
  - Arteriosclerosis coronary artery [Unknown]
  - Arterial stiffness [Unknown]
  - Blood pressure systolic increased [Unknown]
  - Death [Fatal]
  - Aortic arteriosclerosis [Unknown]
  - Diabetes mellitus [Unknown]
